FAERS Safety Report 9701489 (Version 5)
Quarter: 2014Q1

REPORT INFORMATION
  Report Type: Report from Study
  Country: IT (occurrence: IT)
  Receive Date: 20131121
  Receipt Date: 20140307
  Transmission Date: 20141002
  Serious: Yes (Other)
  Sender: FDA-Public Use
  Company Number: IT-BAYER-2013-125646

PATIENT
  Age: 60 Year
  Sex: Male

DRUGS (6)
  1. REGORAFENIB [Suspect]
     Indication: COLORECTAL CANCER METASTATIC
     Dosage: 160 MG, QD, 3 W ON AND 1 W OFF, 40 MG
     Dates: start: 20130918, end: 20130927
  2. REGORAFENIB [Suspect]
     Indication: COLORECTAL CANCER METASTATIC
     Dosage: 120 MG/DAY
     Dates: start: 20131003, end: 20131008
  3. REGORAFENIB [Suspect]
     Indication: COLORECTAL CANCER METASTATIC
     Dosage: 80 MG/DAY (3 WEEKS ON AND 1 WEEK OFF)
     Route: 048
     Dates: start: 20131016, end: 20131026
  4. REGORAFENIB [Suspect]
     Indication: COLORECTAL CANCER METASTATIC
     Dosage: 80 MG/DAY (3 WEEKS ON AND 1 WEEK OFF)
     Route: 048
     Dates: start: 20131112, end: 20131202
  5. REGORAFENIB [Suspect]
     Indication: COLORECTAL CANCER METASTATIC
     Dosage: 120 MG DAILY, 3 WEEKS ON AND 1 WEEK OFF
     Route: 048
     Dates: start: 20131210, end: 20131230
  6. REGORAFENIB [Suspect]
     Indication: COLORECTAL CANCER METASTATIC
     Dosage: 120 MG DAILY, 3 WEEKS ON AND 1 WEEK OFF
     Route: 048
     Dates: start: 20140107, end: 20140127

REACTIONS (29)
  - Pyrexia [Recovered/Resolved]
  - Diarrhoea [None]
  - Diarrhoea [None]
  - Mucosal inflammation [None]
  - Asthenia [None]
  - Decreased appetite [None]
  - Hypertension [None]
  - Clostridium difficile colitis [None]
  - Pyrexia [None]
  - Asthenia [None]
  - Hypertension [None]
  - Hypercreatininaemia [None]
  - Diarrhoea [None]
  - Nausea [None]
  - Asthenia [None]
  - Palmar-plantar erythrodysaesthesia syndrome [None]
  - Dysphonia [None]
  - Rhinitis [None]
  - Rhinitis [None]
  - Decreased appetite [None]
  - Nausea [None]
  - Palmar-plantar erythrodysaesthesia syndrome [None]
  - Asthenia [None]
  - Pyrexia [None]
  - Diarrhoea [None]
  - Mucosal inflammation [None]
  - Asthenia [None]
  - Diarrhoea [None]
  - Anaemia [None]
